FAERS Safety Report 12875545 (Version 2)
Quarter: 2016Q4

REPORT INFORMATION
  Report Type: Spontaneous
  Country: US (occurrence: US)
  Receive Date: 20161024
  Receipt Date: 20161108
  Transmission Date: 20170207
  Serious: No
  Sender: FDA-Public Use
  Company Number: US-ASTRAZENECA-2016SF08718

PATIENT
  Sex: Male

DRUGS (1)
  1. TUDORZA PRESSAIR [Suspect]
     Active Substance: ACLIDINIUM BROMIDE
     Route: 055
     Dates: start: 20161003

REACTIONS (5)
  - Device malfunction [Unknown]
  - Cough [Unknown]
  - Circumstance or information capable of leading to medication error [Unknown]
  - Intentional device misuse [Unknown]
  - Drug dose omission [Unknown]
